FAERS Safety Report 25723316 (Version 8)
Quarter: 2025Q4

REPORT INFORMATION
  Report Type: Spontaneous
  Country: AR (occurrence: AR)
  Receive Date: 20250825
  Receipt Date: 20251024
  Transmission Date: 20260117
  Serious: Yes (Other)
  Sender: PFIZER
  Company Number: AR-PFIZER INC-202500167942

PATIENT
  Age: 12 Year
  Sex: Male

DRUGS (4)
  1. GENOTROPIN [Suspect]
     Active Substance: SOMATROPIN
     Indication: Growth hormone deficiency
     Dosage: 1.4 MG, DAILY (7 TIMES A WEEK)
     Dates: start: 20240712
  2. GENOTROPIN [Suspect]
     Active Substance: SOMATROPIN
     Dosage: 1.4 MG, DAILY (7 TIMES A WEEK))
     Dates: start: 20250820
  3. LEVOTHYROXINE [Concomitant]
     Active Substance: LEVOTHYROXINE
     Dosage: UNK
  4. AMLODIPINE [Concomitant]
     Active Substance: AMLODIPINE BESYLATE
     Dosage: UNK

REACTIONS (15)
  - Hypothalamo-pituitary disorder [Not Recovered/Not Resolved]
  - Hypothyroidism [Unknown]
  - Flushing [Not Recovered/Not Resolved]
  - Pyrexia [Not Recovered/Not Resolved]
  - Tonsillitis [Unknown]
  - Oropharyngeal discomfort [Unknown]
  - Dyspnoea [Unknown]
  - Snoring [Unknown]
  - Joint dislocation [Unknown]
  - Exercise tolerance decreased [Unknown]
  - Skin papilloma [Unknown]
  - Gait disturbance [Unknown]
  - Renal disorder [Unknown]
  - Device use error [Unknown]
  - Device mechanical issue [Unknown]

NARRATIVE: CASE EVENT DATE: 20250801
